FAERS Safety Report 5311391-1 (Version None)
Quarter: 2007Q2

REPORT INFORMATION
  Report Type: 
  Country: None (occurrence: None)
  Receive Date: 20070426
  Receipt Date: 20070426
  Transmission Date: 20071010
  Serious: No
  Sender: FDA-Public Use
  Company Number: None

PATIENT
  Age: 86 Year
  Sex: Male
  Weight: 68.3 kg

DRUGS (13)
  1. ALPHAGAN P [Suspect]
     Indication: GLAUCOMA
     Dosage: 1 DROP OU Q 8 HOURS
     Dates: start: 20060922, end: 20061212
  2. ALPHAGAN [Suspect]
     Indication: GLAUCOMA
     Dosage: 1 DROP OU Q 12 HOURS
     Dates: start: 20010903, end: 20020912
  3. COSOPT [Concomitant]
  4. TRAVATAN [Concomitant]
  5. ASPIRIN [Concomitant]
  6. TERAZOSIN HCL [Concomitant]
  7. SIMVASTATIN [Concomitant]
  8. LEVALBUTEROL TART [Concomitant]
  9. IPRATROPIUM BR [Concomitant]
  10. FLUNISOLIDE [Concomitant]
  11. COLCHICINE [Concomitant]
  12. BRIMONIDINE TARTRATE [Concomitant]
  13. MECLIZINE [Concomitant]

REACTIONS (7)
  - CORNEAL SCAR [None]
  - DOCUMENTED HYPERSENSITIVITY TO ADMINISTERED DRUG [None]
  - DRUG HYPERSENSITIVITY [None]
  - EYE IRRITATION [None]
  - OCULAR HYPERAEMIA [None]
  - PUPILLARY REFLEX IMPAIRED [None]
  - VISUAL FIELD DEFECT [None]
